FAERS Safety Report 5247313-1 (Version None)
Quarter: 2007Q1

REPORT INFORMATION
  Report Type: 
  Country: None (occurrence: None)
  Receive Date: 20070227
  Receipt Date: 20070223
  Transmission Date: 20070707
  Serious: Yes (Other)
  Sender: FDA-Public Use
  Company Number: CA-JNJFOC-20070204726

PATIENT
  Age: 51 Year
  Sex: Female

DRUGS (9)
  1. REMICADE [Suspect]
     Indication: DRUG USE FOR UNKNOWN INDICATION
     Route: 042
  2. PURINTHOL [Suspect]
     Indication: DRUG USE FOR UNKNOWN INDICATION
     Route: 048
  3. TENORMIN [Concomitant]
     Route: 048
  4. ASPIRIN [Concomitant]
     Route: 048
  5. FERROUS SULFATE [Concomitant]
     Route: 048
  6. GLUCOPHAGE [Concomitant]
     Route: 048
  7. LASIX [Concomitant]
     Route: 048
  8. LIPITOR [Concomitant]
     Route: 048
  9. TOLBUTAMINE [Concomitant]
     Route: 048

REACTIONS (2)
  - LYMPHADENITIS [None]
  - TUBERCULOSIS [None]
